FAERS Safety Report 24621844 (Version 1)
Quarter: 2024Q4

REPORT INFORMATION
  Report Type: Spontaneous
  Country: US (occurrence: US)
  Receive Date: 20241114
  Receipt Date: 20241114
  Transmission Date: 20250114
  Serious: No
  Sender: SANOFI AVENTIS
  Company Number: US-SA-2024SA327163

PATIENT
  Age: 33 Year
  Sex: Male

DRUGS (1)
  1. DUPIXENT [Suspect]
     Active Substance: DUPILUMAB
     Indication: Eczema
     Dosage: 300.000MG QOW

REACTIONS (4)
  - Sleep disorder [Unknown]
  - Dry skin [Unknown]
  - Pruritus [Recovering/Resolving]
  - Skin exfoliation [Unknown]
